FAERS Safety Report 23615362 (Version 1)
Quarter: 2024Q1

REPORT INFORMATION
  Report Type: Spontaneous
  Country: US (occurrence: US)
  Receive Date: 20240311
  Receipt Date: 20240311
  Transmission Date: 20240410
  Serious: Yes (Other)
  Sender: FDA-Public Use
  Company Number: None

PATIENT
  Age: 7 Decade
  Sex: Male

DRUGS (6)
  1. MYCOPHENOLATE MOFETIL [Suspect]
     Active Substance: MYCOPHENOLATE MOFETIL
     Indication: Endocarditis noninfective
     Dosage: 1000 MILLIGRAM, BID (EVERY 12 HOUR)
     Route: 065
  2. MYCOPHENOLATE MOFETIL [Suspect]
     Active Substance: MYCOPHENOLATE MOFETIL
     Indication: Systemic lupus erythematosus
  3. VANCOMYCIN [Suspect]
     Active Substance: VANCOMYCIN
     Indication: Endocarditis noninfective
     Dosage: UNK
     Route: 042
  4. APIXABAN [Concomitant]
     Active Substance: APIXABAN
     Indication: Deep vein thrombosis
     Dosage: UNK
     Route: 065
  5. PREDNISONE [Concomitant]
     Active Substance: PREDNISONE
     Indication: Endocarditis noninfective
     Dosage: 40 MILLIGRAM, QD
     Route: 065
  6. PREDNISONE [Concomitant]
     Active Substance: PREDNISONE
     Indication: Systemic lupus erythematosus

REACTIONS (3)
  - Cytopenia [Unknown]
  - Condition aggravated [Unknown]
  - Renal impairment [Unknown]
